FAERS Safety Report 18360171 (Version 1)
Quarter: 2020Q4

REPORT INFORMATION
  Report Type: Spontaneous
  Country: US (occurrence: US)
  Receive Date: 20201008
  Receipt Date: 20201008
  Transmission Date: 20210114
  Serious: No
  Sender: FDA-Public Use
  Company Number: None

PATIENT
  Age: 33 Year
  Sex: Female

DRUGS (1)
  1. MAVYRET [Suspect]
     Active Substance: GLECAPREVIR\PIBRENTASVIR
     Dosage: ?          OTHER DOSE:100MG\400MG;?
     Route: 048
     Dates: start: 202009

REACTIONS (3)
  - Condition aggravated [None]
  - Fatigue [None]
  - Jaundice [None]

NARRATIVE: CASE EVENT DATE: 20200919
